FAERS Safety Report 5420226-8 (Version None)
Quarter: 2007Q3

REPORT INFORMATION
  Report Type: 
  Country: None (occurrence: None)
  Receive Date: 20070815
  Receipt Date: 20070807
  Transmission Date: 20080115
  Serious: Yes (Death)
  Sender: FDA-Public Use
  Company Number: 17192

PATIENT
  Age: 40 Year
  Sex: Male

DRUGS (14)
  1. METHOTREXATE [Suspect]
     Indication: HODGKIN'S DISEASE
     Dates: start: 20050301, end: 20050601
  2. METHOTREXATE [Suspect]
     Indication: HODGKIN'S DISEASE
     Dates: start: 20050301, end: 20050601
  3. METHOTREXATE [Suspect]
     Indication: HODGKIN'S DISEASE
     Dates: start: 20050531, end: 20050604
  4. METHOTREXATE [Suspect]
     Indication: HODGKIN'S DISEASE
     Dates: start: 20050531, end: 20050604
  5. METHOTREXATE [Suspect]
     Indication: HODGKIN'S DISEASE
     Dates: start: 20050604
  6. ARA-C. MFR: DABUR [Suspect]
     Indication: HODGKIN'S DISEASE
     Dates: start: 20050301, end: 20050601
  7. ARA-C. MFR: DABUR [Suspect]
     Indication: HODGKIN'S DISEASE
     Dates: start: 20050531, end: 20050604
  8. ARA-C. MFR: DABUR [Suspect]
     Indication: HODGKIN'S DISEASE
     Dates: start: 20050604
  9. DEXAMETHASONE. MFR: ZYDUS CADILA [Concomitant]
  10. VINCRISTINE. MFR: PFIZER [Concomitant]
  11. IFOSPHAMIDE. MFR: BAXTER [Concomitant]
  12. ETOPOSIDE. MFR: DABUR [Concomitant]
  13. CYCLOPHOSPHAMIDE. MFR: BAXTER [Concomitant]
  14. ADRIAMYCIN /00330901/. MFR: DABUR [Concomitant]

REACTIONS (8)
  - GENERAL PHYSICAL HEALTH DETERIORATION [None]
  - GLASGOW COMA SCALE ABNORMAL [None]
  - MENINGEAL DISORDER [None]
  - MYELITIS TRANSVERSE [None]
  - MYELOPATHY [None]
  - PARAPLEGIA [None]
  - RESPIRATORY DISTRESS [None]
  - URINARY RETENTION [None]
